FAERS Safety Report 11213547 (Version 1)
Quarter: 2015Q2

REPORT INFORMATION
  Report Type: Spontaneous
  Country: IT (occurrence: IT)
  Receive Date: 20150623
  Receipt Date: 20150623
  Transmission Date: 20150821
  Serious: Yes (Other)
  Sender: FDA-Public Use
  Company Number: IT-HOSPIRA-15668

PATIENT
  Age: 68 Year
  Sex: Female

DRUGS (1)
  1. CARBOPLATIN HOSPIRA [Suspect]
     Active Substance: CARBOPLATIN
     Indication: PRODUCT USED FOR UNKNOWN INDICATION
     Dosage: 1 TIME
     Route: 042
     Dates: start: 20070105, end: 20070205

REACTIONS (6)
  - Pruritus [Recovered/Resolved]
  - Abdominal pain upper [Recovered/Resolved]
  - Rash [Recovered/Resolved]
  - Paraesthesia [Recovered/Resolved]
  - Swollen tongue [Recovered/Resolved]
  - Laryngeal oedema [Recovered/Resolved]

NARRATIVE: CASE EVENT DATE: 20070205
